FAERS Safety Report 25320227 (Version 1)
Quarter: 2025Q2

REPORT INFORMATION
  Report Type: Spontaneous
  Country: US (occurrence: US)
  Receive Date: 20250515
  Receipt Date: 20250515
  Transmission Date: 20250717
  Serious: No
  Sender: NOVARTIS
  Company Number: US-SANDOZ-SDZ2024US079724

PATIENT
  Sex: Male
  Weight: 65.2 kg

DRUGS (2)
  1. TACROLIMUS [Suspect]
     Active Substance: TACROLIMUS
     Indication: Renal transplant
     Dosage: 3 MG, QD,, 1.5 MG, BID
     Route: 048
  2. MYFORTIC [Suspect]
     Active Substance: MYCOPHENOLATE SODIUM
     Indication: Renal transplant
     Dosage: 540 MG, QD, 180 MG, TID
     Route: 048

REACTIONS (1)
  - Product prescribing error [Unknown]
